FAERS Safety Report 15877251 (Version 1)
Quarter: 2019Q1

REPORT INFORMATION
  Report Type: Spontaneous
  Country: US (occurrence: US)
  Receive Date: 20190128
  Receipt Date: 20190128
  Transmission Date: 20190417
  Serious: No
  Sender: FDA-Public Use
  Company Number: US-SA-2019SA018098

PATIENT
  Sex: Male

DRUGS (1)
  1. PRALUENT [Suspect]
     Active Substance: ALIROCUMAB
     Indication: LIBIDO DECREASED
     Dosage: 75 MG, QOW
     Route: 058

REACTIONS (1)
  - Abdominal discomfort [Not Recovered/Not Resolved]
